FAERS Safety Report 7831877-5 (Version None)
Quarter: 2011Q4

REPORT INFORMATION
  Report Type: 
  Country: None (occurrence: None)
  Receive Date: 20111021
  Receipt Date: 20111018
  Transmission Date: 20120403
  Serious: Yes (Hospitalization)
  Sender: FDA-Public Use
  Company Number: US-ABBOTT-11P-163-0697966-00

PATIENT
  Sex: Female
  Weight: 27.24 kg

DRUGS (12)
  1. HUMIRA [Suspect]
     Dosage: BOOSTER SHOT
  2. TUMS EXTRA STRENGTH [Concomitant]
     Indication: ABDOMINAL PAIN UPPER
     Dosage: PRN
     Dates: end: 20110701
  3. VITAMIN D [Concomitant]
     Indication: PRODUCT USED FOR UNKNOWN INDICATION
     Dosage: 400 IU DAILY
     Route: 048
  4. IRON [Concomitant]
     Indication: PRODUCT USED FOR UNKNOWN INDICATION
     Dosage: 65MG-2-3X WEEK
     Dates: end: 20110701
  5. FLINSTONES GUMMIES [Concomitant]
     Indication: BONE DISORDER
     Dosage: DAILY
     Dates: end: 20110701
  6. HUMIRA [Suspect]
  7. ENTOCORT EC [Concomitant]
     Indication: CROHN'S DISEASE
     Dosage: 9MG DAILY
     Dates: start: 20110128, end: 20110701
  8. FISH OIL [Concomitant]
     Indication: PRODUCT USED FOR UNKNOWN INDICATION
  9. HUMIRA [Suspect]
     Indication: CROHN'S DISEASE
     Dates: start: 20101101, end: 20110705
  10. CALCIUM W/VITAMIN D [Concomitant]
     Indication: PRODUCT USED FOR UNKNOWN INDICATION
     Dosage: 500MG CA/200IU VIT D BID
     Route: 048
  11. IRON [Concomitant]
     Dates: start: 20110701
  12. YUMMY BEARS MULTIVITAMIN AND MINERALS [Concomitant]
     Indication: VITAMIN SUPPLEMENTATION
     Dates: start: 20110701

REACTIONS (12)
  - COUGH [None]
  - MALAISE [None]
  - FATIGUE [None]
  - WEIGHT DECREASED [None]
  - RHINORRHOEA [None]
  - BETA HAEMOLYTIC STREPTOCOCCAL INFECTION [None]
  - DECREASED APPETITE [None]
  - NASOPHARYNGITIS [None]
  - DIARRHOEA [None]
  - GROWTH RETARDATION [None]
  - WEIGHT GAIN POOR [None]
  - ABDOMINAL PAIN [None]
